FAERS Safety Report 10066415 (Version 1)
Quarter: 2014Q2

REPORT INFORMATION
  Report Type: Spontaneous
  Country: IT (occurrence: IT)
  Receive Date: 20140408
  Receipt Date: 20140408
  Transmission Date: 20141212
  Serious: Yes (Hospitalization)
  Sender: FDA-Public Use
  Company Number: IT-ACTAVIS-2013-25165

PATIENT
  Age: 30 Year
  Sex: Female

DRUGS (2)
  1. BUPROPION HYDROCHLORIDE (UNKNOWN) [Suspect]
     Indication: DRUG ABUSE
     Route: 048
     Dates: start: 20130608, end: 20130608
  2. IBUPROFEN (UNKNOWN) [Suspect]
     Indication: DRUG ABUSE
     Route: 048
     Dates: start: 20130608, end: 20130608

REACTIONS (1)
  - Drug abuse [Unknown]
